FAERS Safety Report 9576422 (Version 2)
Quarter: 2013Q4

REPORT INFORMATION
  Report Type: Spontaneous
  Country: US (occurrence: US)
  Receive Date: 20131001
  Receipt Date: 20131001
  Transmission Date: 20140711
  Serious: No
  Sender: FDA-Public Use
  Company Number: US-AMGEN-USASP2013000002

PATIENT
  Age: 62 Year
  Sex: Female

DRUGS (10)
  1. ENBREL [Suspect]
     Indication: PSORIASIS
     Dosage: 50 MG, 2 TIMES/WK
     Route: 058
     Dates: start: 201206
  2. ZOLOFT [Concomitant]
     Dosage: 100 MG, UNK
  3. VALTREX [Concomitant]
     Dosage: 500 MG, UNK
  4. ESTROVEN [Concomitant]
     Dosage: UNK
  5. MAGNESIUM [Concomitant]
     Dosage: 300 MG, UNK
  6. FISH OIL [Concomitant]
     Dosage: UNK
  7. CALCIUM D                          /00944201/ [Concomitant]
     Dosage: UNK
  8. VALIUM                             /00017001/ [Concomitant]
     Dosage: 2 MG, UNK
  9. VITAMIN E                          /00110501/ [Concomitant]
     Dosage: 1000 UNIT, UNK
  10. VITAMIN B12                        /00056201/ [Concomitant]
     Dosage: 2000 MUG, UNK

REACTIONS (3)
  - Wheezing [Unknown]
  - Cough [Unknown]
  - Influenza [Unknown]
